FAERS Safety Report 13371999 (Version 1)
Quarter: 2017Q1

REPORT INFORMATION
  Report Type: Spontaneous
  Country: US (occurrence: US)
  Receive Date: 20170326
  Receipt Date: 20170326
  Transmission Date: 20170429
  Serious: Yes (Death, Hospitalization)
  Sender: FDA-Public Use
  Company Number: US-BAXTER-2017BAX011008

PATIENT
  Age: 64 Year
  Sex: Female

DRUGS (2)
  1. COUMADIN [Concomitant]
     Active Substance: WARFARIN SODIUM
     Indication: ATRIAL FIBRILLATION
     Route: 065
  2. DIANEAL LOW CALCIUM PERITONEAL DIALYSIS SOLUTION WITH DEXTROSE [Suspect]
     Active Substance: CALCIUM CHLORIDE\DEXTROSE\MAGNESIUM CHLORIDE\SODIUM CHLORIDE\SODIUM LACTATE
     Indication: PERITONEAL DIALYSIS
     Route: 033
     Dates: start: 2017, end: 20170314

REACTIONS (8)
  - Death [Fatal]
  - Limb injury [Unknown]
  - Streptococcal infection [Not Recovered/Not Resolved]
  - Haemorrhage [Unknown]
  - Haemarthrosis [Unknown]
  - Localised infection [Not Recovered/Not Resolved]
  - Peripheral swelling [Unknown]
  - Sepsis [Unknown]

NARRATIVE: CASE EVENT DATE: 20170227
